APPROVED DRUG PRODUCT: CEFIXIME
Active Ingredient: CEFIXIME
Strength: 100MG/5ML
Dosage Form/Route: FOR SUSPENSION;ORAL
Application: A204835 | Product #001 | TE Code: AB
Applicant: AUROBINDO PHARMA LTD
Approved: Apr 14, 2015 | RLD: No | RS: No | Type: RX